FAERS Safety Report 8788811 (Version 1)
Quarter: 2012Q4

REPORT INFORMATION
  Report Type: 
  Country: CN (occurrence: CN)
  Receive Date: 20120915
  Receipt Date: 20120915
  Transmission Date: 20130627
  Serious: Yes (Other)
  Sender: FDA-Public Use
  Company Number: CN-ABBOTT-12P-035-0979869-00

PATIENT
  Age: 60 Year
  Sex: Male

DRUGS (1)
  1. DEPAKINE [Suspect]
     Indication: PROPHYLAXIS
     Dosage: extended release
     Route: 048
     Dates: start: 20101103, end: 20101120

REACTIONS (5)
  - Convulsion [Recovering/Resolving]
  - Pyrexia [Recovering/Resolving]
  - Chills [Recovering/Resolving]
  - Jaundice [Recovering/Resolving]
  - Rash [Recovered/Resolved]
